FAERS Safety Report 8190189-3 (Version None)
Quarter: 2012Q1

REPORT INFORMATION
  Report Type: 
  Country: None (occurrence: None)
  Receive Date: 20120307
  Receipt Date: 20120227
  Transmission Date: 20120608
  Serious: Yes (Death, Hospitalization)
  Sender: FDA-Public Use
  Company Number: JP-AMGEN-JPNCT2011053920

PATIENT
  Age: 72 Year
  Sex: Male
  Weight: 69 kg

DRUGS (24)
  1. MINOCYCLINE HCL [Suspect]
     Indication: PROPHYLAXIS
     Dosage: 100 MG, BID
     Route: 048
     Dates: start: 20110916, end: 20110925
  2. FLUOROURACIL [Concomitant]
     Dosage: 3500 MG, UNK
     Route: 041
     Dates: start: 20110915, end: 20110915
  3. MAGMITT [Concomitant]
     Indication: CONSTIPATION
     Dosage: 500 MG, UNK
     Route: 048
     Dates: start: 20100101
  4. LEVOLEUCOVORIN CALCIUM [Concomitant]
     Dosage: 300 MG, Q2WK
     Route: 041
     Dates: end: 20110803
  5. DEXAMETHASONE SODIUM PHOSPHATE [Concomitant]
     Route: 042
  6. HYDROCORTISONE SODIUM SUCCINATE [Concomitant]
     Indication: PROPHYLAXIS
     Dosage: UNK
     Route: 042
     Dates: start: 20090801, end: 20110817
  7. MEROPENEM [Suspect]
     Indication: INTERSTITIAL LUNG DISEASE
     Dosage: 1000 MG, UNK
     Route: 041
     Dates: start: 20110926
  8. ERYTHROCIN LACTOBIONATE [Suspect]
     Dosage: 1500 MG, UNK
     Route: 041
     Dates: start: 20110926, end: 20110930
  9. RABEPRAZOLE SODIUM [Concomitant]
     Indication: GASTRIC ULCER
     Dosage: 10 MG, UNK
     Route: 048
     Dates: start: 20100101
  10. PYDOXAL [Concomitant]
     Indication: NEUROPATHY PERIPHERAL
     Dosage: 10 MG, UNK
     Route: 048
     Dates: start: 20100101
  11. PANITUMUMAB [Suspect]
     Indication: COLORECTAL CANCER
     Dosage: 400 MG, Q2WK
     Route: 041
     Dates: start: 20110915, end: 20110915
  12. FLUOROURACIL [Concomitant]
     Dosage: 3500 MG, UNK
     Route: 041
     Dates: start: 20100721, end: 20101027
  13. WARFARIN SODIUM [Concomitant]
     Indication: PROPHYLAXIS
     Dosage: 2 MG, UNK
     Route: 048
     Dates: start: 20100101
  14. ZOPICOOL [Concomitant]
     Dosage: 7.5 MG, UNK
     Route: 048
     Dates: start: 20100101
  15. ERBITUX [Suspect]
     Indication: COLORECTAL CANCER
     Dosage: 350 MG, UNK
     Route: 041
     Dates: start: 20110817, end: 20110817
  16. FLUOROURACIL [Concomitant]
     Indication: COLORECTAL CANCER
     Dosage: 3500 MG, Q2WK
     Route: 041
     Dates: start: 20090511
  17. FLUOROURACIL [Concomitant]
     Dosage: 3500 MG, UNK
     Route: 041
     Dates: start: 20110818
  18. VANCOMYCIN [Suspect]
     Dosage: 1000 MG, UNK
     Route: 041
     Dates: start: 20111004, end: 20111006
  19. OXALIPLATIN [Concomitant]
     Indication: COLORECTAL CANCER
     Dosage: 100 MG, Q2WK
     Route: 041
     Dates: start: 20090511, end: 20110803
  20. FLUOROURACIL [Concomitant]
     Dosage: 3500 MG, Q2WK
     Route: 041
     Dates: end: 20110803
  21. LEVOLEUCOVORIN CALCIUM [Concomitant]
     Indication: COLORECTAL CANCER
     Dosage: 300 MG, Q2WK
     Route: 041
     Dates: start: 20090511
  22. LEVOLEUCOVORIN CALCIUM [Concomitant]
     Dosage: 300 MG, UNK
     Route: 041
     Dates: start: 20100721, end: 20101027
  23. LEVOLEUCOVORIN CALCIUM [Concomitant]
     Dosage: 300 MG, UNK
     Route: 041
     Dates: start: 20110818
  24. LEVOLEUCOVORIN CALCIUM [Concomitant]
     Dosage: 300 MG, UNK
     Route: 041
     Dates: start: 20110915, end: 20110915

REACTIONS (1)
  - INTERSTITIAL LUNG DISEASE [None]
